FAERS Safety Report 6599662-2 (Version None)
Quarter: 2010Q1

REPORT INFORMATION
  Report Type: 
  Country: None (occurrence: None)
  Receive Date: 20100224
  Receipt Date: 20100219
  Transmission Date: 20100710
  Serious: Yes (Other)
  Sender: FDA-Public Use
  Company Number: GB-TEVA-225055ISR

PATIENT
  Age: 43 Year
  Sex: Male

DRUGS (3)
  1. LANSOPRAZOLE [Suspect]
  2. ATAZANAVIR SULFATE [Suspect]
  3. TRUVADA [Suspect]

REACTIONS (1)
  - VIRAL LOAD INCREASED [None]
